FAERS Safety Report 9060981 (Version 1)
Quarter: 2013Q1

REPORT INFORMATION
  Report Type: Spontaneous
  Country: US (occurrence: US)
  Receive Date: 20130204
  Receipt Date: 20130204
  Transmission Date: 20140127
  Serious: Yes (Hospitalization)
  Sender: FDA-Public Use
  Company Number: US-NOVOPROD-367092

PATIENT
  Age: 57 Year
  Sex: Female
  Weight: 99.05 kg

DRUGS (4)
  1. NOVOLOG FLEXPEN [Suspect]
     Indication: TYPE 2 DIABETES MELLITUS
     Dosage: 10 U, BID
     Route: 058
  2. NOVOLOG FLEXPEN [Suspect]
     Dosage: 20 U, QD AT 6PM
     Route: 058
  3. NOVOLOG FLEXPEN [Suspect]
     Dosage: SLIDING SCALE
     Route: 058
  4. LEVEMIR [Concomitant]
     Indication: TYPE 2 DIABETES MELLITUS
     Route: 058

REACTIONS (4)
  - Dizziness [Unknown]
  - Headache [Not Recovered/Not Resolved]
  - Blood glucose decreased [Not Recovered/Not Resolved]
  - Hypoglycaemia [Unknown]
